FAERS Safety Report 8545776-7 (Version None)
Quarter: 2012Q3

REPORT INFORMATION
  Report Type: 
  Country: None (occurrence: None)
  Receive Date: 20120727
  Receipt Date: 20120716
  Transmission Date: 20120928
  Serious: Yes (Other)
  Sender: FDA-Public Use
  Company Number: CO-ASTRAZENECA-2012SE52726

PATIENT
  Age: 59 Year
  Sex: Female

DRUGS (5)
  1. BRILINTA [Suspect]
     Route: 048
  2. BRILINTA [Suspect]
     Indication: ACUTE CORONARY SYNDROME
     Route: 048
     Dates: start: 20120710
  3. OMEPRAZOLE [Concomitant]
     Route: 048
     Dates: start: 20120710
  4. ASPIRIN [Concomitant]
     Indication: ACUTE CORONARY SYNDROME
     Route: 048
     Dates: start: 20120710
  5. ATORVASTATIN [Concomitant]
     Indication: ACUTE CORONARY SYNDROME
     Route: 048
     Dates: start: 20120710

REACTIONS (1)
  - GINGIVAL BLEEDING [None]
